FAERS Safety Report 24169528 (Version 1)
Quarter: 2024Q3

REPORT INFORMATION
  Report Type: Report from Study
  Country: US (occurrence: None)
  Receive Date: 20240802
  Receipt Date: 20240802
  Transmission Date: 20241017
  Serious: Yes (Other)
  Sender: ASTRAZENECA
  Company Number: 2024A170632

PATIENT
  Sex: Female

DRUGS (3)
  1. CALQUENCE [Suspect]
     Active Substance: ACALABRUTINIB
     Route: 048
  2. AZITHROMYCIN [Concomitant]
     Active Substance: AZITHROMYCIN
  3. METHYLPREDNISOLONE [Concomitant]
     Active Substance: METHYLPREDNISOLONE

REACTIONS (2)
  - Tooth fracture [Unknown]
  - Drug interaction [Unknown]
